FAERS Safety Report 24792674 (Version 2)
Quarter: 2025Q1

REPORT INFORMATION
  Report Type: Spontaneous
  Country: EE (occurrence: EE)
  Receive Date: 20241231
  Receipt Date: 20250109
  Transmission Date: 20250409
  Serious: Yes (Other)
  Sender: JOHNSON AND JOHNSON
  Company Number: EE-JNJFOC-20241274230

PATIENT
  Age: 32 Year
  Sex: Female

DRUGS (3)
  1. TOPAMAX [Suspect]
     Active Substance: TOPIRAMATE
     Indication: Epilepsy
     Route: 065
  2. TOPAMAX [Suspect]
     Active Substance: TOPIRAMATE
     Indication: Migraine
     Route: 065
  3. TOPAMAX [Suspect]
     Active Substance: TOPIRAMATE
     Indication: Headache

REACTIONS (1)
  - Angle closure glaucoma [Recovering/Resolving]
